FAERS Safety Report 6632970-5 (Version None)
Quarter: 2010Q1

REPORT INFORMATION
  Report Type: 
  Country: None (occurrence: None)
  Receive Date: 20100312
  Receipt Date: 20100209
  Transmission Date: 20100710
  Serious: No
  Sender: FDA-Public Use
  Company Number: US-BAYER-201011889BCC

PATIENT
  Age: 67 Year
  Sex: Female
  Weight: 54 kg

DRUGS (3)
  1. ALEVE (CAPLET) [Suspect]
     Indication: HEADACHE
     Dosage: TOTAL DAILY DOSE: 220 MG  UNIT DOSE: 220 MG
     Route: 048
  2. LOW DOSE SYNTHROID [Concomitant]
     Route: 065
  3. MIACALCIN [Concomitant]
     Route: 065

REACTIONS (1)
  - ABDOMINAL DISCOMFORT [None]
